FAERS Safety Report 15178844 (Version 1)
Quarter: 2018Q3

REPORT INFORMATION
  Report Type: Spontaneous
  Country: US (occurrence: US)
  Receive Date: 20180722
  Receipt Date: 20180722
  Transmission Date: 20181010
  Serious: Yes (Other)
  Sender: FDA-Public Use
  Company Number: PHEH2018US029415

PATIENT
  Sex: Male

DRUGS (1)
  1. COSENTYX [Suspect]
     Active Substance: SECUKINUMAB
     Indication: PRODUCT USED FOR UNKNOWN INDICATION
     Dosage: 300 MG/ML, QMO
     Route: 065

REACTIONS (4)
  - Mycobacterium tuberculosis complex test negative [Unknown]
  - Confusional state [Unknown]
  - Latent tuberculosis [Recovered/Resolved]
  - Mycobacterium tuberculosis complex test positive [Unknown]
